FAERS Safety Report 20737279 (Version 2)
Quarter: 2022Q2

REPORT INFORMATION
  Report Type: Spontaneous
  Country: US (occurrence: None)
  Receive Date: 20220421
  Receipt Date: 20220601
  Transmission Date: 20220720
  Serious: Yes (Other)
  Sender: FDA-Public Use
  Company Number: 2022A153544

PATIENT
  Age: 24713 Day
  Sex: Female

DRUGS (3)
  1. BUDESONIDE\FORMOTEROL\GLYCOPYRRONIUM [Suspect]
     Active Substance: BUDESONIDE\FORMOTEROL\GLYCOPYRRONIUM
     Dosage: 160/9/4.8 MCG 2 PUFFS TWICE EACH DAY
     Route: 055
     Dates: start: 20210907
  2. BUDESONIDE\FORMOTEROL\GLYCOPYRRONIUM [Suspect]
     Active Substance: BUDESONIDE\FORMOTEROL\GLYCOPYRRONIUM
     Dosage: 160/9/4.8 MCG 2 PUFFS TWICE EACH DAY
     Route: 055
     Dates: start: 20220323
  3. OXYGEN [Concomitant]
     Active Substance: OXYGEN
     Route: 045

REACTIONS (5)
  - Asthma [Not Recovered/Not Resolved]
  - Drug dose omission by device [Recovered/Resolved]
  - Device delivery system issue [Recovered/Resolved]
  - Intentional device misuse [Recovered/Resolved]
  - Drug ineffective [Unknown]

NARRATIVE: CASE EVENT DATE: 20220323
